FAERS Safety Report 17611167 (Version 2)
Quarter: 2020Q3

REPORT INFORMATION
  Report Type: Spontaneous
  Country: US (occurrence: US)
  Receive Date: 20200401
  Receipt Date: 20200911
  Transmission Date: 20201102
  Serious: No
  Sender: FDA-Public Use
  Company Number: US-SA-2020SA080378

PATIENT

DRUGS (4)
  1. DUPIXENT [Suspect]
     Active Substance: DUPILUMAB
     Indication: DERMATITIS ALLERGIC
  2. RESTASIS [Suspect]
     Active Substance: CYCLOSPORINE
     Indication: LACRIMATION INCREASED
  3. CETIRIZINE HYDROCHLORIDE. [Suspect]
     Active Substance: CETIRIZINE HYDROCHLORIDE
     Indication: LACRIMATION INCREASED
  4. DUPIXENT [Suspect]
     Active Substance: DUPILUMAB
     Indication: DERMATITIS ATOPIC
     Dosage: 300 MG, QOW
     Route: 058
     Dates: start: 20180420

REACTIONS (5)
  - Condition aggravated [Unknown]
  - Herpes virus infection [Unknown]
  - Lacrimation increased [Unknown]
  - Eye irritation [Unknown]
  - Dry eye [Unknown]
